FAERS Safety Report 10101469 (Version 1)
Quarter: 2014Q2

REPORT INFORMATION
  Report Type: Report from Study
  Country: US (occurrence: US)
  Receive Date: 20140424
  Receipt Date: 20140424
  Transmission Date: 20141212
  Serious: Yes (Other)
  Sender: FDA-Public Use
  Company Number: US-ROCHE-1383049

PATIENT
  Sex: Female
  Weight: 54.4 kg

DRUGS (4)
  1. NUTROPIN AQ [Suspect]
     Indication: HYPOPITUITARISM
     Route: 058
     Dates: start: 2000
  2. HYDROCORTISONE [Concomitant]
     Indication: HYPOPITUITARISM
     Dosage: AM
     Route: 048
  3. HYDROCORTISONE [Concomitant]
     Dosage: PM
     Route: 048
  4. SYNTHROID [Concomitant]
     Indication: HYPOPITUITARISM
     Route: 048

REACTIONS (1)
  - Ill-defined disorder [Unknown]
